FAERS Safety Report 25631505 (Version 1)
Quarter: 2025Q3

REPORT INFORMATION
  Report Type: Report from Study
  Country: CA (occurrence: CA)
  Receive Date: 20250801
  Receipt Date: 20250801
  Transmission Date: 20251020
  Serious: Yes (Death, Other)
  Sender: ASTELLAS
  Company Number: CA-ASTELLAS-2025-AER-041875

PATIENT
  Age: 62 Year
  Sex: Male

DRUGS (1)
  1. ENZALUTAMIDE [Suspect]
     Active Substance: ENZALUTAMIDE
     Indication: Hormone-refractory prostate cancer
     Route: 048
     Dates: end: 2019

REACTIONS (2)
  - Death [Fatal]
  - Drug-induced liver injury [Unknown]

NARRATIVE: CASE EVENT DATE: 20220404
